FAERS Safety Report 4878138-4 (Version None)
Quarter: 2005Q4

REPORT INFORMATION
  Report Type: 
  Country: None (occurrence: None)
  Receive Date: 20051212
  Receipt Date: 20050930
  Transmission Date: 20060501
  Serious: No
  Sender: FDA-Public Use
  Company Number: 2004-00213

PATIENT
  Age: 60 Year
  Sex: Female

DRUGS (7)
  1. VELCADE [Suspect]
     Indication: MULTIPLE MYELOMA
     Dosage: IV BOLUS
     Route: 040
     Dates: start: 20040101
  2. COUMADIN [Concomitant]
  3. TRIAMTERENE (TRIAMTERENE) [Concomitant]
  4. NEURONTIN [Concomitant]
  5. SKELAXIN [Concomitant]
  6. ZYRTEC [Concomitant]
  7. KLONOPIN [Concomitant]

REACTIONS (6)
  - BACK PAIN [None]
  - FEELING HOT [None]
  - HYPERAESTHESIA [None]
  - INTERVERTEBRAL DISC DISPLACEMENT [None]
  - PAIN IN EXTREMITY [None]
  - PARAESTHESIA [None]
